FAERS Safety Report 14125053 (Version 2)
Quarter: 2017Q4

REPORT INFORMATION
  Report Type: Spontaneous
  Country: AU (occurrence: AU)
  Receive Date: 20171025
  Receipt Date: 20171027
  Transmission Date: 20180321
  Serious: Yes (Hospitalization)
  Sender: FDA-Public Use
  Company Number: AU-PFIZER INC-A001108

PATIENT
  Age: 76 Year
  Sex: Male

DRUGS (4)
  1. SERTRALINE [Suspect]
     Active Substance: SERTRALINE HYDROCHLORIDE
     Indication: DEPRESSION
     Dosage: 200 MG, DAILY
     Route: 048
  2. HALOPERIDOL. [Suspect]
     Active Substance: HALOPERIDOL
     Indication: ILL-DEFINED DISORDER
     Dosage: 6 MG, DAILY
     Route: 048
  3. LITHIUM. [Suspect]
     Active Substance: LITHIUM
     Indication: ILL-DEFINED DISORDER
     Dosage: UNK
     Route: 048
  4. TEMAZEPAM. [Suspect]
     Active Substance: TEMAZEPAM
     Indication: ILL-DEFINED DISORDER
     Dosage: UNK
     Route: 065

REACTIONS (8)
  - Parkinsonism [Recovered/Resolved]
  - Dysphagia [Recovered/Resolved]
  - Dyspnoea [Recovered/Resolved]
  - Neuroleptic malignant syndrome [Recovered/Resolved]
  - Weight decreased [Recovered/Resolved]
  - Areflexia [Recovered/Resolved]
  - Pharyngeal disorder [Recovered/Resolved]
  - Dysphonia [Recovered/Resolved]
